FAERS Safety Report 14598745 (Version 1)
Quarter: 2018Q1

REPORT INFORMATION
  Report Type: Spontaneous
  Country: US (occurrence: US)
  Receive Date: 20180302
  Receipt Date: 20180302
  Transmission Date: 20180509
  Serious: Yes (Other)
  Sender: FDA-Public Use
  Company Number: None

PATIENT
  Age: 59 Year
  Sex: Male
  Weight: 78.93 kg

DRUGS (1)
  1. LAMOTRIGINE -GENERIC -ANY STRENGTH [Suspect]
     Active Substance: LAMOTRIGINE
     Indication: BIPOLAR DISORDER
     Dates: start: 201004, end: 201008

REACTIONS (6)
  - Depression [None]
  - Lethargy [None]
  - Threat of redundancy [None]
  - Poor quality sleep [None]
  - Product substitution issue [None]
  - Disturbance in attention [None]

NARRATIVE: CASE EVENT DATE: 201004
